FAERS Safety Report 8862329 (Version 2)
Quarter: 2013Q1

REPORT INFORMATION
  Report Type: Spontaneous
  Country: ZA (occurrence: ZA)
  Receive Date: 20121026
  Receipt Date: 20130207
  Transmission Date: 20140127
  Serious: Yes (Other)
  Sender: FDA-Public Use
  Company Number: ZA-JNJFOC-20121013049

PATIENT
  Sex: Female

DRUGS (1)
  1. TRAMACET [Suspect]
     Indication: PRODUCT USED FOR UNKNOWN INDICATION
     Route: 048

REACTIONS (3)
  - Hallucination [Unknown]
  - Personality disorder [Unknown]
  - Aggression [Unknown]
